FAERS Safety Report 18595305 (Version 1)
Quarter: 2020Q4

REPORT INFORMATION
  Report Type: Report from Study
  Country: IT (occurrence: IT)
  Receive Date: 20201209
  Receipt Date: 20201209
  Transmission Date: 20210114
  Serious: Yes (Other)
  Sender: FDA-Public Use
  Company Number: IT-INCYTE CORPORATION-2018IN005361

PATIENT

DRUGS (8)
  1. JAKAVI [Suspect]
     Active Substance: RUXOLITINIB
     Dosage: 8 OT, QD
     Route: 065
     Dates: start: 20171116, end: 20171123
  2. JAKAVI [Suspect]
     Active Substance: RUXOLITINIB
     Dosage: 15 OT, QD
     Route: 065
     Dates: start: 20171124, end: 20180507
  3. ASPIRIN [ACETYLSALICYLIC ACID] [Concomitant]
     Active Substance: ASPIRIN
     Indication: PRODUCT USED FOR UNKNOWN INDICATION
     Dosage: UNK
     Route: 065
  4. JAKAVI [Suspect]
     Active Substance: RUXOLITINIB
     Dosage: 20 OT, QD
     Route: 065
     Dates: start: 20180508, end: 20181219
  5. JAKAVI [Suspect]
     Active Substance: RUXOLITINIB
     Dosage: 10 OT, QD
     Route: 065
     Dates: start: 20181220, end: 20190805
  6. JAKAVI [Suspect]
     Active Substance: RUXOLITINIB
     Indication: MYELOFIBROSIS
     Dosage: 15 MG, QD
     Route: 048
     Dates: start: 20170829, end: 20171115
  7. CARDIOPIRIN [Concomitant]
     Active Substance: ASPIRIN
     Indication: PROPHYLAXIS
     Dosage: 100 OT, UNK
     Route: 048
     Dates: start: 20150720
  8. JAKAVI [Suspect]
     Active Substance: RUXOLITINIB
     Dosage: 20 OT, QD
     Route: 065
     Dates: start: 20190806

REACTIONS (21)
  - Pain in extremity [Unknown]
  - Contusion [Unknown]
  - Insomnia [Unknown]
  - Flatulence [Unknown]
  - Pyrexia [Unknown]
  - Osteoporosis [Unknown]
  - Thrombocytopenia [Recovered/Resolved]
  - Abdominal pain [Unknown]
  - Fall [Unknown]
  - Night sweats [Unknown]
  - Haemorrhage [Recovered/Resolved]
  - Chest pain [Unknown]
  - Ear swelling [Unknown]
  - Erythema [Unknown]
  - Atrial fibrillation [Recovered/Resolved]
  - Decreased appetite [Unknown]
  - Oedema peripheral [Unknown]
  - Wrist fracture [Unknown]
  - Asthenia [Unknown]
  - Diverticulitis [Recovered/Resolved]
  - Petechiae [Unknown]

NARRATIVE: CASE EVENT DATE: 20171025
